FAERS Safety Report 9131078 (Version 2)
Quarter: 2013Q1

REPORT INFORMATION
  Report Type: Report from Study
  Country: JP (occurrence: JP)
  Receive Date: 20130301
  Receipt Date: 20130327
  Transmission Date: 20140127
  Serious: Yes (Death, Hospitalization)
  Sender: FDA-Public Use
  Company Number: JP-EISAI INC-E7389-03479-SOL-JP

PATIENT
  Age: 37 Year
  Sex: Female
  Weight: 45 kg

DRUGS (49)
  1. HALAVEN [Suspect]
     Indication: BREAST CANCER RECURRENT
     Route: 041
     Dates: start: 20111004, end: 20120807
  2. HALAVEN [Suspect]
     Indication: METASTASES TO LUNG
  3. HALAVEN [Suspect]
     Indication: METASTASES TO BONE
  4. ZOMETA [Concomitant]
     Indication: METASTASES TO BONE
     Dosage: UNKNOWN
     Route: 041
  5. ZOMETA [Concomitant]
     Indication: PROPHYLAXIS
  6. DECADRON [Concomitant]
     Indication: PROPHYLAXIS
     Dosage: UNKNOWN
     Route: 041
  7. SEROTONE [Concomitant]
     Indication: PROPHYLAXIS
     Dosage: UNKNOWN
     Route: 041
  8. KAKKONTO [Concomitant]
     Indication: NASOPHARYNGITIS
     Dosage: UNKNOWN
     Route: 048
  9. ZYRTEC [Concomitant]
     Indication: RHINORRHOEA
     Dosage: UNKNOWN
     Route: 048
  10. SENEGA [Concomitant]
     Indication: COUGH
     Dosage: UNKNOWN
     Route: 048
  11. APRICOT KERNEL WATER [Concomitant]
     Indication: COUGH
     Dosage: UNKNOWN
     Route: 048
  12. BROCIN [Concomitant]
     Indication: COUGH
     Dosage: UNKNOWN
     Route: 048
  13. CODEINE PHOSPHATE [Concomitant]
     Indication: COUGH
     Dosage: UNKNOWN
     Route: 048
  14. METHYCOBAL [Concomitant]
     Indication: NEUROPATHY PERIPHERAL
     Dosage: UNKNOWN
     Route: 048
     Dates: start: 20120221
  15. METHYCOBAL [Concomitant]
     Indication: HYPOAESTHESIA
  16. GOSHAJINKIGAN [Concomitant]
     Indication: NEUROPATHY PERIPHERAL
     Dosage: UNKNOWN
     Route: 048
     Dates: start: 20120221
  17. GOSHAJINKIGAN [Concomitant]
     Indication: HYPOAESTHESIA
  18. LOXONIN [Concomitant]
     Indication: PAIN
     Dosage: UNKNOWN
     Route: 048
  19. CYTOTEC [Concomitant]
     Indication: PROPHYLAXIS
     Dosage: UNKNOWN
     Route: 048
  20. CYTOTEC [Concomitant]
     Indication: GASTRITIS
  21. CRAVIT [Concomitant]
     Indication: PROPHYLAXIS
     Dosage: UNKNOWN
     Route: 048
  22. GASTER [Concomitant]
     Indication: PROPHYLAXIS
     Dosage: UNKNOWN
     Route: 041
  23. ROCEPHIN [Concomitant]
     Indication: PROPHYLAXIS
     Dosage: UNKNOWN
     Route: 041
  24. ADONA [Concomitant]
     Indication: PROPHYLAXIS
     Dosage: UNKNOWN
     Route: 041
  25. ATARAX-P [Concomitant]
     Indication: PROPHYLAXIS
     Dosage: UNKNOWN
     Route: 041
  26. MUCOSTA [Concomitant]
     Indication: PROPHYLAXIS
     Dosage: UNKNOWN
     Route: 048
  27. FLOMOX [Concomitant]
     Indication: PROPHYLAXIS
     Dosage: UNKNOWN
     Route: 048
  28. SOLANAX [Concomitant]
     Indication: CHEST PAIN
     Dosage: UNKNOWN
     Route: 048
  29. POSTERISAN [Concomitant]
     Indication: ANORECTAL DISCOMFORT
     Dosage: UNKNOWN
     Route: 065
  30. LENDORMIN [Concomitant]
     Indication: INSOMNIA
     Dosage: UNKNOWN
     Route: 048
  31. RANMARK [Concomitant]
     Indication: PROPHYLAXIS
     Dosage: UNKNOWN
     Route: 041
  32. OXYCONTIN [Concomitant]
     Indication: PAIN
     Dosage: UNKNOWN
     Route: 048
  33. NOVAMIN [Concomitant]
     Indication: NAUSEA
     Dosage: UNKNOWN
     Route: 048
  34. SENNOSIDE [Concomitant]
     Indication: CONSTIPATION
     Dosage: UNKNOWN
     Route: 048
  35. LAXOBERON [Concomitant]
     Indication: CONSTIPATION
     Dosage: UNKNOWN
     Route: 048
  36. ENSURE H [Concomitant]
     Indication: NUTRITIONAL SUPPLEMENTATION
     Dosage: UNKNOWN
     Route: 048
  37. ASPARA-CA [Concomitant]
     Indication: PROPHYLAXIS
     Dosage: UNKNOWN
     Route: 048
  38. OXINORM [Concomitant]
     Indication: PAIN
     Dosage: UNKNOWN
     Route: 048
  39. CALCIUM LACTATE [Concomitant]
     Indication: PROPHYLAXIS
     Dosage: UNKNOWN
     Route: 048
  40. CALCIUM CHLORIDE [Concomitant]
     Indication: PROPHYLAXIS
     Dosage: UNKNOWN
     Route: 065
  41. POTACOL-R [Concomitant]
     Indication: DECREASED APPETITE
     Dosage: UNKNOWN
     Route: 065
  42. AMIGRAND [Concomitant]
     Indication: DECREASED APPETITE
     Dosage: UNKNOWN
     Route: 065
  43. MINOPEN [Concomitant]
     Indication: PLEURODESIS
     Dosage: UNKNOWN
     Route: 041
  44. LIDOCAINE [Concomitant]
     Indication: PLEURODESIS
     Dosage: UNKNOWN
     Route: 041
  45. VITAMIDIN [Concomitant]
     Indication: DECREASED APPETITE
     Dosage: UNKNOWN
     Route: 065
  46. SEFMAZON [Concomitant]
     Indication: INFUSION
     Dosage: UNKNOWN
     Route: 041
  47. SOLU MEDROL [Concomitant]
     Indication: RESPIRATORY DISTRESS
     Dosage: UNKNOWN
     Route: 041
  48. NAUZELIN [Concomitant]
     Indication: PROPHYLAXIS
     Dosage: UNKNOWN
     Route: 048
  49. FENTANYL [Concomitant]
     Route: 041

REACTIONS (5)
  - Malignant neoplasm progression [Fatal]
  - Blood calcium decreased [Recovering/Resolving]
  - Lymphopenia [Not Recovered/Not Resolved]
  - Leukopenia [Not Recovered/Not Resolved]
  - Neutropenia [Not Recovered/Not Resolved]
